FAERS Safety Report 6273969-0 (Version None)
Quarter: 2009Q3

REPORT INFORMATION
  Report Type: 
  Country: None (occurrence: None)
  Receive Date: 20090715
  Receipt Date: 20090629
  Transmission Date: 20100115
  Serious: Yes (Other)
  Sender: FDA-Public Use
  Company Number: 2009S1011628

PATIENT
  Age: 72 Year
  Sex: Male

DRUGS (6)
  1. ALENDRONIC ACID (ALENDRONIC ACID) [Suspect]
     Indication: PROPHYLAXIS
     Dosage: 70 MG; WEEKLY ORAL
     Route: 048
     Dates: start: 19700101
  2. NAPROXEN [Suspect]
     Indication: RHEUMATOID ARTHRITIS
     Dosage: ORAL
     Route: 048
     Dates: start: 19970101
  3. OMEPRAZOLE [Suspect]
     Indication: DRUG USE FOR UNKNOWN INDICATION
     Dosage: 20 MG; DAILY ORAL
     Route: 048
     Dates: start: 20030101
  4. ETANERCEPT (ETANERCEPT) [Suspect]
     Indication: RHEUMATOID ARTHRITIS
     Dosage: 50 MG; WEEKLY SUBCUTANEOUS
     Route: 058
     Dates: start: 20090120, end: 20090501
  5. PREDNISOLONE [Suspect]
     Indication: RHEUMATOID ARTHRITIS
     Dosage: 7.5 MG; DAILY ORAL
     Route: 048
     Dates: start: 20051001
  6. ALLOPURINOL [Suspect]
     Indication: GOUT
     Dosage: ORAL
     Route: 048
     Dates: start: 19680101

REACTIONS (2)
  - DIVERTICULITIS [None]
  - RECTAL HAEMORRHAGE [None]
